FAERS Safety Report 11116856 (Version 2)
Quarter: 2015Q2

REPORT INFORMATION
  Report Type: Spontaneous
  Country: US (occurrence: US)
  Receive Date: 20150515
  Receipt Date: 20150520
  Transmission Date: 20150821
  Serious: Yes (Death, Hospitalization)
  Sender: FDA-Public Use
  Company Number: US-ACTELION-A-US2015-117949

PATIENT
  Age: 66 Year
  Sex: Male

DRUGS (13)
  1. VENTAVIS [Suspect]
     Active Substance: ILOPROST
     Indication: PULMONARY ARTERIAL HYPERTENSION
     Dosage: 5 MCG, 6-9 TIMES DAILY
     Route: 055
     Dates: start: 20050610, end: 20150508
  2. AVODART [Concomitant]
     Active Substance: DUTASTERIDE
  3. FOLIC ACID. [Concomitant]
     Active Substance: FOLIC ACID
  4. SPIRONOLACTONE. [Concomitant]
     Active Substance: SPIRONOLACTONE
  5. TIKOSYN [Concomitant]
     Active Substance: DOFETILIDE
  6. OPSUMIT [Suspect]
     Active Substance: MACITENTAN
     Indication: PULMONARY ARTERIAL HYPERTENSION
     Dosage: 10 MG, QD
     Route: 048
     Dates: end: 20150508
  7. SILDENAFIL. [Concomitant]
     Active Substance: SILDENAFIL
  8. PRILOSEC [Concomitant]
     Active Substance: OMEPRAZOLE MAGNESIUM
  9. TYVASO [Concomitant]
     Active Substance: TREPROSTINIL
  10. LEVOTHYROXINE [Concomitant]
     Active Substance: LEVOTHYROXINE
  11. COUMADIN [Concomitant]
     Active Substance: WARFARIN SODIUM
  12. TRAMADOL [Concomitant]
     Active Substance: TRAMADOL
  13. PREDNISONE. [Concomitant]
     Active Substance: PREDNISONE

REACTIONS (6)
  - Dysphagia [Unknown]
  - Cough [Unknown]
  - Right ventricular failure [Fatal]
  - Gastrooesophageal reflux disease [Unknown]
  - Renal failure [Fatal]
  - Concomitant disease progression [Fatal]

NARRATIVE: CASE EVENT DATE: 20150508
